FAERS Safety Report 9229952 (Version 1)
Quarter: 2013Q2

REPORT INFORMATION
  Report Type: Spontaneous
  Country: US (occurrence: US)
  Receive Date: 20130415
  Receipt Date: 20130415
  Transmission Date: 20140414
  Serious: Yes (Other)
  Sender: FDA-Public Use
  Company Number: US-JNJFOC-20130402218

PATIENT
  Sex: Female
  Weight: 57.61 kg

DRUGS (2)
  1. DURAGESIC [Suspect]
     Indication: PRODUCT USED FOR UNKNOWN INDICATION
     Dosage: ONE 150 UG/HR AND 1-100MCG PATCH AND 1-50MCG PATCH
     Route: 062
     Dates: start: 2005, end: 2008
  2. DURAGESIC [Suspect]
     Indication: PRODUCT USED FOR UNKNOWN INDICATION
     Route: 062
     Dates: start: 2012

REACTIONS (3)
  - Spinal operation [Recovered/Resolved]
  - Pain [Recovered/Resolved]
  - Product quality issue [Unknown]
